FAERS Safety Report 15803923 (Version 1)
Quarter: 2019Q1

REPORT INFORMATION
  Report Type: Spontaneous
  Country: US (occurrence: US)
  Receive Date: 20190109
  Receipt Date: 20190109
  Transmission Date: 20190417
  Serious: No
  Sender: FDA-Public Use
  Company Number: None

PATIENT
  Age: 39 Year
  Sex: Male
  Weight: 73.8 kg

DRUGS (1)
  1. GADAVIST [Suspect]
     Active Substance: GADOBUTROL
     Dosage: ?          OTHER FREQUENCY:ONE TIME;?
     Route: 042

REACTIONS (6)
  - Pruritus [None]
  - Cough [None]
  - Eye pruritus [None]
  - Urticaria [None]
  - Respiratory tract congestion [None]
  - Injection related reaction [None]

NARRATIVE: CASE EVENT DATE: 20190108
